FAERS Safety Report 19461590 (Version 1)
Quarter: 2021Q2

REPORT INFORMATION
  Report Type: Report from Study
  Country: US (occurrence: US)
  Receive Date: 20210625
  Receipt Date: 20210625
  Transmission Date: 20210717
  Serious: Yes (Hospitalization)
  Sender: FDA-Public Use
  Company Number: US-TEVA-2021-US-1924338

PATIENT
  Age: 78 Year
  Sex: Female

DRUGS (1)
  1. AUSTEDO [Suspect]
     Active Substance: DEUTETRABENAZINE
     Indication: TARDIVE DYSKINESIA
     Dosage: 12 MILLIGRAM DAILY; TWICE A DAY
     Route: 048
     Dates: start: 20210523, end: 20210603

REACTIONS (9)
  - Confusional state [Unknown]
  - Dizziness [Unknown]
  - Dyspnoea [Unknown]
  - Hypokinesia [Recovering/Resolving]
  - Drug hypersensitivity [Recovering/Resolving]
  - Gastrooesophageal reflux disease [Unknown]
  - Abdominal pain [Unknown]
  - Urinary tract infection [Recovering/Resolving]
  - Malaise [Unknown]

NARRATIVE: CASE EVENT DATE: 2021
